FAERS Safety Report 9878468 (Version 2)
Quarter: 2014Q1

REPORT INFORMATION
  Report Type: Spontaneous
  Country: US (occurrence: US)
  Receive Date: 20140206
  Receipt Date: 20140206
  Transmission Date: 20141002
  Serious: No
  Sender: FDA-Public Use
  Company Number: US-ALLERGAN-1311860US

PATIENT
  Age: 72 Year
  Sex: Female

DRUGS (8)
  1. BOTOX [Suspect]
     Indication: MIGRAINE
     Dosage: 10 UNITS, SINGLE
     Route: 030
     Dates: start: 20130503, end: 20130503
  2. BOTOX [Suspect]
     Dosage: 165 UNITS, SINGLE
     Route: 030
     Dates: start: 20130503, end: 20130503
  3. BOTOX [Suspect]
     Dosage: 10 UNITS, SINGLE
     Route: 030
     Dates: start: 20121216, end: 20121216
  4. BOTOX [Suspect]
     Dosage: 165 UNITS, SINGLE
     Route: 030
     Dates: start: 20121216, end: 20121216
  5. BOTOX [Suspect]
     Dosage: 155 UNITS, SINGLE
     Route: 030
     Dates: start: 20120419, end: 20120419
  6. BOTOX [Suspect]
     Dosage: 155 UNITS, SINGLE
     Route: 030
     Dates: start: 20120413, end: 20120413
  7. GABAPENTIN [Concomitant]
     Indication: PRODUCT USED FOR UNKNOWN INDICATION
     Dosage: 400 MG, TID
     Route: 048
  8. THYROID MEDICATION NOS [Concomitant]
     Indication: PRODUCT USED FOR UNKNOWN INDICATION
     Dosage: UNK

REACTIONS (7)
  - Dysstasia [Recovered/Resolved]
  - Fall [Recovered/Resolved]
  - Asthenia [Recovered/Resolved]
  - Dyspnoea [Recovered/Resolved]
  - Therapeutic response decreased [Unknown]
  - Neck pain [Recovered/Resolved]
  - Musculoskeletal pain [Recovered/Resolved]
